FAERS Safety Report 7486664-7 (Version None)
Quarter: 2011Q2

REPORT INFORMATION
  Report Type: 
  Country: None (occurrence: None)
  Receive Date: 20110517
  Receipt Date: 20100804
  Transmission Date: 20111010
  Serious: No
  Sender: FDA-Public Use
  Company Number: US-NOVEN-ALL1-2010-04161

PATIENT

DRUGS (3)
  1. DAYTRANA [Suspect]
     Dosage: UNK MG, 1X/DAY:QD
     Route: 062
     Dates: start: 20080101
  2. DAYTRANA [Suspect]
     Dosage: 30 MG, 1X/DAY:QD
     Route: 062
  3. HUMATROP [Concomitant]
     Dosage: 1.4 MG, 1X/DAY:QD
     Route: 048
     Dates: start: 20060101

REACTIONS (5)
  - DRUG EFFECT DELAYED [None]
  - CONDITION AGGRAVATED [None]
  - PRODUCT QUALITY ISSUE [None]
  - ANXIETY [None]
  - DERMATILLOMANIA [None]
